FAERS Safety Report 16650668 (Version 2)
Quarter: 2019Q3

REPORT INFORMATION
  Report Type: Report from Study
  Country: DE (occurrence: DE)
  Receive Date: 20190731
  Receipt Date: 20190808
  Transmission Date: 20191004
  Serious: Yes (Hospitalization, Other)
  Sender: FDA-Public Use
  Company Number: US-AMGEN-USACT2019118736

PATIENT
  Age: 51 Year
  Sex: Male
  Weight: 82 kg

DRUGS (2)
  1. DENOSUMAB [Suspect]
     Active Substance: DENOSUMAB
     Indication: METASTATIC MALIGNANT MELANOMA
     Dosage: 120 MILLIGRAM
     Route: 058
     Dates: start: 20190628, end: 20190723
  2. NIVOLUMAB [Suspect]
     Active Substance: NIVOLUMAB
     Indication: METASTATIC MALIGNANT MELANOMA
     Dosage: 83 MILLIGRAM
     Route: 042
     Dates: start: 20190528, end: 20190709

REACTIONS (1)
  - Neurological symptom [Not Recovered/Not Resolved]

NARRATIVE: CASE EVENT DATE: 20190723
